FAERS Safety Report 13399151 (Version 1)
Quarter: 2017Q2

REPORT INFORMATION
  Report Type: Spontaneous
  Country: DK (occurrence: DK)
  Receive Date: 20170404
  Receipt Date: 20170404
  Transmission Date: 20170830
  Serious: Yes (Disabling)
  Sender: FDA-Public Use
  Company Number: DK-AMGEN-DNKSP2017048848

PATIENT
  Age: 81 Year
  Sex: Female
  Weight: 43 kg

DRUGS (4)
  1. PARACETAMOL B. BRAUN [Concomitant]
     Active Substance: ACETAMINOPHEN
     Indication: PAIN
     Dates: start: 20150410
  2. VAGIFEM [Concomitant]
     Active Substance: ESTRADIOL
     Indication: DYSURIA
     Dates: start: 20160914
  3. PROLIA [Suspect]
     Active Substance: DENOSUMAB
     Indication: OSTEOPOROSIS
     Dosage: 60 MG/ML. Q6MO
     Route: 058
     Dates: start: 20160523, end: 20170310
  4. CLOPIDOGREL [Concomitant]
     Active Substance: CLOPIDOGREL BISULFATE
     Indication: THROMBOSIS PROPHYLAXIS
     Dates: start: 20130610

REACTIONS (3)
  - Dermatitis [Not Recovered/Not Resolved]
  - Skin ulcer [Not Recovered/Not Resolved]
  - Rash [Not Recovered/Not Resolved]

NARRATIVE: CASE EVENT DATE: 20161123
